FAERS Safety Report 13836403 (Version 1)
Quarter: 2017Q3

REPORT INFORMATION
  Report Type: Spontaneous
  Country: US (occurrence: US)
  Receive Date: 20170804
  Receipt Date: 20170804
  Transmission Date: 20171127
  Serious: No
  Sender: FDA-Public Use
  Company Number: US-BAYER-2017-145381

PATIENT
  Age: 68 Year
  Sex: Male

DRUGS (1)
  1. ULTRAVIST [Suspect]
     Active Substance: IOPROMIDE
     Indication: IMAGING PROCEDURE
     Dosage: 100 ML, ONCE
     Dates: start: 20170727, end: 20170727

REACTIONS (4)
  - Eye swelling [None]
  - Blister [None]
  - Blood pressure increased [Not Recovered/Not Resolved]
  - Urticaria [None]

NARRATIVE: CASE EVENT DATE: 20170727
